FAERS Safety Report 25326340 (Version 2)
Quarter: 2025Q2

REPORT INFORMATION
  Report Type: Spontaneous
  Country: US (occurrence: US)
  Receive Date: 20250516
  Receipt Date: 20250609
  Transmission Date: 20250716
  Serious: Yes (Hospitalization, Other)
  Sender: SK LIFE SCIENCE
  Company Number: US-SK LIFE SCIENCE, INC-SKPVG-2024-001909

PATIENT

DRUGS (6)
  1. XCOPRI [Suspect]
     Active Substance: CENOBAMATE
     Indication: Epilepsy
     Dosage: 12.5 MILLIGRAM, 1 PILL BY MOUTH EACH DAY, TAKEN AT 5PM
     Route: 048
     Dates: start: 20240801, end: 20240814
  2. XCOPRI [Suspect]
     Active Substance: CENOBAMATE
     Indication: Generalised tonic-clonic seizure
     Dosage: 25 MILLIGRAM, 1 PILL BY MOUTH EACH DAY, TAKEN AT 5PM
     Route: 048
     Dates: start: 20240815, end: 20240828
  3. XCOPRI [Suspect]
     Active Substance: CENOBAMATE
     Dosage: 50 MILLIGRAM, 1 PILL BY MOUTH EACH DAY, TAKEN AT 5PM
     Route: 048
     Dates: start: 20240829
  4. XCOPRI [Suspect]
     Active Substance: CENOBAMATE
     Dosage: 100 MILLIGRAM, QD
     Route: 048
  5. XCOPRI [Suspect]
     Active Substance: CENOBAMATE
     Dosage: 150MG DAILY
     Route: 048
  6. DEPAKOTE [Concomitant]
     Active Substance: DIVALPROEX SODIUM
     Indication: Product used for unknown indication
     Route: 065

REACTIONS (8)
  - Seizure [Not Recovered/Not Resolved]
  - Panic attack [Not Recovered/Not Resolved]
  - Loss of consciousness [Unknown]
  - Aggression [Not Recovered/Not Resolved]
  - Off label use [Not Recovered/Not Resolved]
  - Seizure [Not Recovered/Not Resolved]
  - Depression [Not Recovered/Not Resolved]
  - Vision blurred [Not Recovered/Not Resolved]

NARRATIVE: CASE EVENT DATE: 20250504
